FAERS Safety Report 14779290 (Version 2)
Quarter: 2018Q2

REPORT INFORMATION
  Report Type: Report from Study
  Country: US (occurrence: US)
  Receive Date: 20180419
  Receipt Date: 20180427
  Transmission Date: 20180711
  Serious: Yes (Hospitalization, Other)
  Sender: FDA-Public Use
  Company Number: US-AMGEN-USACT2018050791

PATIENT
  Age: 69 Year
  Sex: Female
  Weight: 86.5 kg

DRUGS (2)
  1. ROMIPLOSTIM [Suspect]
     Active Substance: ROMIPLOSTIM
     Indication: THROMBOCYTOPENIA
     Dosage: 550 MCG, QWK
     Route: 058
     Dates: start: 20180209
  2. LOVENOX [Concomitant]
     Active Substance: ENOXAPARIN SODIUM
     Dosage: UNK

REACTIONS (6)
  - Embolism [Unknown]
  - Muscular weakness [Not Recovered/Not Resolved]
  - Neck pain [Recovering/Resolving]
  - Dysaesthesia [Recovering/Resolving]
  - Oedema [Unknown]
  - Pain in extremity [Recovering/Resolving]

NARRATIVE: CASE EVENT DATE: 20180411
